FAERS Safety Report 24806288 (Version 1)
Quarter: 2025Q1

REPORT INFORMATION
  Report Type: Spontaneous
  Country: US (occurrence: US)
  Receive Date: 20250103
  Receipt Date: 20250103
  Transmission Date: 20250408
  Serious: No
  Sender: PURDUE
  Company Number: US-PURDUE PHARMA-USA-2025-0314426

PATIENT
  Age: 47 Year
  Sex: Female
  Weight: 66.86 kg

DRUGS (3)
  1. OXYCONTIN [Suspect]
     Active Substance: OXYCODONE HYDROCHLORIDE
     Indication: Pain
     Route: 048
  2. LENVIMA [Suspect]
     Active Substance: LENVATINIB
     Indication: Renal cancer
     Dosage: 14 MILLIGRAM, DAILY
     Route: 048
     Dates: start: 20241018
  3. LENVIMA [Suspect]
     Active Substance: LENVATINIB
     Indication: Neoplasm

REACTIONS (2)
  - Dizziness [Unknown]
  - Drug ineffective [Unknown]
